FAERS Safety Report 6541061-3 (Version None)
Quarter: 2010Q1

REPORT INFORMATION
  Report Type: 
  Country: None (occurrence: None)
  Receive Date: 20100118
  Receipt Date: 20100108
  Transmission Date: 20100710
  Serious: Yes (Disabling)
  Sender: FDA-Public Use
  Company Number: GXKR2010NO00718

PATIENT
  Sex: Female

DRUGS (5)
  1. SIMVASTATIN (NGX) [Suspect]
     Indication: HYPERCHOLESTEROLAEMIA
     Dosage: 40 MG, UNK
     Route: 048
     Dates: start: 20070801, end: 20090801
  2. SOMAC [Concomitant]
     Dosage: UNK
  3. KESTINE [Concomitant]
     Indication: SEASONAL ALLERGY
  4. SOTALOL [Concomitant]
     Indication: ATRIAL FIBRILLATION
     Dosage: 20 MG, QD
  5. TRAMADOL [Concomitant]
     Indication: PAIN
     Dosage: 50 MG, QD

REACTIONS (5)
  - ARTHRALGIA [None]
  - DEPRESSION [None]
  - HYPERSOMNIA [None]
  - MEMORY IMPAIRMENT [None]
  - MYALGIA [None]
